FAERS Safety Report 9130131 (Version 2)
Quarter: 2013Q1

REPORT INFORMATION
  Report Type: Spontaneous
  Country: US (occurrence: US)
  Receive Date: 20130228
  Receipt Date: 20130326
  Transmission Date: 20140127
  Serious: No
  Sender: FDA-Public Use
  Company Number: US-ROXANE LABORATORIES, INC.-2013-RO-00316RO

PATIENT
  Sex: Female
  Weight: 73 kg

DRUGS (4)
  1. LITHIUM CARBONATE [Suspect]
     Indication: BIPOLAR I DISORDER
     Dosage: 450 MG
  2. LITHIUM [Suspect]
     Indication: BIPOLAR I DISORDER
     Dates: start: 201108
  3. LISINOPRIL [Concomitant]
     Indication: HYPERTENSION
     Dosage: 20 MG
  4. OMEGA 3 [Concomitant]

REACTIONS (1)
  - Alopecia [Not Recovered/Not Resolved]
